FAERS Safety Report 5926373-6 (Version None)
Quarter: 2008Q4

REPORT INFORMATION
  Report Type: 
  Country: None (occurrence: None)
  Receive Date: 20081022
  Receipt Date: 20081009
  Transmission Date: 20090506
  Serious: Yes (Hospitalization)
  Sender: FDA-Public Use
  Company Number: JP-BAYER-200812124BYL

PATIENT
  Age: 53 Year
  Sex: Male
  Weight: 73 kg

DRUGS (5)
  1. ASPIRIN [Suspect]
     Indication: ARTERIOSCLEROSIS OBLITERANS
     Dosage: TOTAL DAILY DOSE: 200 MG  UNIT DOSE: 100 MG
     Route: 048
     Dates: start: 20030101, end: 20070409
  2. ASPIRIN [Suspect]
     Route: 048
     Dates: start: 20070428
  3. LOXONIN [Suspect]
     Indication: ARTHRALGIA
     Route: 048
     Dates: start: 20070301
  4. PANALDINE [Suspect]
     Indication: ARTERIOSCLEROSIS OBLITERANS
     Route: 048
     Dates: start: 20030101, end: 20070409
  5. PANALDINE [Suspect]
     Route: 048
     Dates: start: 20070428

REACTIONS (9)
  - ARTHRALGIA [None]
  - ERYTHEMA [None]
  - ERYTHROMELALGIA [None]
  - GASTROINTESTINAL HAEMORRHAGE [None]
  - OEDEMA PERIPHERAL [None]
  - PANCREATIC PSEUDOCYST [None]
  - PANCREATITIS ACUTE [None]
  - PYREXIA [None]
  - THROMBOCYTHAEMIA [None]
